FAERS Safety Report 8917909 (Version 1)
Quarter: 2012Q4

REPORT INFORMATION
  Report Type: 
  Country: US (occurrence: US)
  Receive Date: 20121120
  Receipt Date: 20121120
  Transmission Date: 20130627
  Serious: Yes (Death, Hospitalization)
  Sender: FDA-Public Use
  Company Number: CHPA2012US023842

PATIENT
  Age: 73 Year
  Sex: Female

DRUGS (1)
  1. KERI UNKNOWN [Suspect]
     Indication: THERAPEUTIC SKIN CARE TOPICAL
     Dosage: Unk, BID
     Route: 061

REACTIONS (2)
  - Neoplasm malignant [Fatal]
  - Malaise [Unknown]
